FAERS Safety Report 8360760-4 (Version None)
Quarter: 2012Q1

REPORT INFORMATION
  Report Type: 
  Country: None (occurrence: None)
  Receive Date: 20120323
  Receipt Date: 20110125
  Transmission Date: 20120608
  Serious: Yes (Other)
  Sender: FDA-Public Use
  Company Number: 163-21880-11012885

PATIENT
  Age: 70 Year
  Sex: Male

DRUGS (16)
  1. BENZONATATE [Concomitant]
  2. COREG CR (CARVEDILOL) [Concomitant]
  3. PROCRIT [Concomitant]
  4. FOLIC ACID [Concomitant]
  5. PRILOSEC [Concomitant]
  6. AZITHROMYCIN [Concomitant]
  7. LEVOTHYROXINE SODIUM [Concomitant]
  8. REVLIMID [Suspect]
     Indication: MYELODYSPLASTIC SYNDROME
     Dosage: 10 MG, 1 IN 1 D, PO
     Route: 048
     Dates: start: 20060601
  9. PREVACID [Concomitant]
  10. DIGOXIN [Concomitant]
  11. IMODIUM [Concomitant]
  12. CLACIUM (CALCIUM) [Concomitant]
  13. PRADAXA (DABIGATRAN ETEXILATE MESILATE) [Concomitant]
  14. VITAMIN B12 [Concomitant]
  15. GLIPIZIDE [Concomitant]
  16. VITAMIN B COMPLEX (B-KOMPLEX ^LECIVA^) [Concomitant]

REACTIONS (1)
  - HAEMOGLOBIN DECREASED [None]
